FAERS Safety Report 12294427 (Version 3)
Quarter: 2017Q1

REPORT INFORMATION
  Report Type: Spontaneous
  Country: US (occurrence: US)
  Receive Date: 20160422
  Receipt Date: 20170104
  Transmission Date: 20170428
  Serious: No
  Sender: FDA-Public Use
  Company Number: US-ASTRAZENECA-2016SE32802

PATIENT
  Age: 19772 Day
  Sex: Female
  Weight: 151.5 kg

DRUGS (4)
  1. TUDORZA PRESSAIR [Suspect]
     Active Substance: ACLIDINIUM BROMIDE
     Indication: EMPHYSEMA
     Dosage: 400 UG,1 PUFF TWICE A DAY
     Route: 055
     Dates: start: 20160228
  2. TUDORZA PRESSAIR [Suspect]
     Active Substance: ACLIDINIUM BROMIDE
     Indication: EMPHYSEMA
     Dosage: 400 UG,1 PUFF TWICE A DAY
     Route: 055
  3. VENTOLIN [Concomitant]
     Active Substance: ALBUTEROL SULFATE
  4. QVAR [Concomitant]
     Active Substance: BECLOMETHASONE DIPROPIONATE

REACTIONS (5)
  - Malaise [Unknown]
  - Drug dose omission [Unknown]
  - Vomiting [Unknown]
  - Retching [Unknown]
  - Device issue [Unknown]

NARRATIVE: CASE EVENT DATE: 20160319
